FAERS Safety Report 26093817 (Version 1)
Quarter: 2025Q4

REPORT INFORMATION
  Report Type: Report from Study
  Country: CO (occurrence: CO)
  Receive Date: 20251126
  Receipt Date: 20251126
  Transmission Date: 20260118
  Serious: Yes (Hospitalization)
  Sender: ELI LILLY AND COMPANY
  Company Number: CO-Merck Healthcare KGaA-2025058910

PATIENT
  Age: 47 Year
  Sex: Male

DRUGS (1)
  1. CETUXIMAB [Suspect]
     Active Substance: CETUXIMAB
     Indication: Head and neck cancer
     Dosage: 885 MG, 2/M (1 EVERY 15 DAY)
     Route: 042
     Dates: start: 20251106

REACTIONS (3)
  - Illness [Not Recovered/Not Resolved]
  - Tumour inflammation [Not Recovered/Not Resolved]
  - Off label use [Unknown]

NARRATIVE: CASE EVENT DATE: 20251115
